FAERS Safety Report 9595148 (Version 1)
Quarter: 2013Q3

REPORT INFORMATION
  Report Type: Spontaneous
  Country: US (occurrence: None)
  Receive Date: 20130927
  Receipt Date: 20130927
  Transmission Date: 20140515
  Serious: Yes (Other)
  Sender: FDA-Public Use
  Company Number: CABO-13003037

PATIENT
  Age: 76 Year
  Sex: Male
  Weight: 92.4 kg

DRUGS (2)
  1. COMETRIQ (CABOZANTINIB) CAPSULE [Suspect]
     Indication: THYROID CANCER
     Route: 048
     Dates: start: 20130719
  2. LISINOPRIL (LISINOPRIL) [Concomitant]

REACTIONS (1)
  - Blood pressure increased [None]
